FAERS Safety Report 5442949-7 (Version None)
Quarter: 2007Q3

REPORT INFORMATION
  Report Type: 
  Country: None (occurrence: None)
  Receive Date: 20070905
  Receipt Date: 20070829
  Transmission Date: 20080115
  Serious: Yes (Other)
  Sender: FDA-Public Use
  Company Number: IE-JNJFOC-20070502141

PATIENT
  Sex: Female

DRUGS (3)
  1. RISPERDAL CONSTA [Suspect]
     Indication: PARANOIA
     Dosage: HAS TAKEN RISPERDAL CONSTA FOR 3 MONTHS
     Route: 030
  2. RISPERDAL [Suspect]
     Indication: UNEVALUABLE EVENT
     Route: 048
  3. DOSTINEX [Concomitant]
     Indication: UNEVALUABLE EVENT

REACTIONS (2)
  - BLOOD PROLACTIN INCREASED [None]
  - OSTEOPENIA [None]
